FAERS Safety Report 21830991 (Version 1)
Quarter: 2023Q1

REPORT INFORMATION
  Report Type: Spontaneous
  Country: FR (occurrence: FR)
  Receive Date: 20230106
  Receipt Date: 20230106
  Transmission Date: 20230417
  Serious: Yes (Hospitalization, Other)
  Sender: FDA-Public Use
  Company Number: None

PATIENT
  Age: 2 Year
  Sex: Female

DRUGS (19)
  1. VANCOMYCIN [Suspect]
     Active Substance: VANCOMYCIN
     Indication: Bacteraemia
     Dosage: 1880 MILLIGRAM, 1 TOTAL
     Route: 065
     Dates: start: 20221021, end: 20221021
  2. MEROPENEM [Suspect]
     Active Substance: MEROPENEM
     Indication: Bacteraemia
     Dosage: 350 MILLIGRAM, Q8H
     Route: 042
  3. PIPERACILLIN SODIUM\TAZOBACTAM SODIUM [Suspect]
     Active Substance: PIPERACILLIN SODIUM\TAZOBACTAM SODIUM
     Indication: Bacteraemia
     Dosage: 900 MILLIGRAM, Q6H
     Route: 042
     Dates: end: 20221021
  4. ACYCLOVIR [Concomitant]
     Active Substance: ACYCLOVIR
     Dosage: UNK
     Route: 065
  5. PAROEX [Concomitant]
     Active Substance: CHLORHEXIDINE GLUCONATE
     Dosage: SOLUTION FOR MOUTHWASH
     Route: 065
  6. CELLCEPT [Concomitant]
     Active Substance: MYCOPHENOLATE MOFETIL
     Dosage: POWDER FOR DILUTE SOLUTION FOR INFUSION
     Route: 065
  7. CHLORPROMAZINE [Concomitant]
     Active Substance: CHLORPROMAZINE
     Dosage: UNK
     Route: 065
  8. CYCLOSPORINE [Concomitant]
     Active Substance: CYCLOSPORINE
     Dosage: UNK
     Route: 065
  9. NALOXONE HYDROCHLORIDE [Concomitant]
     Active Substance: NALOXONE HYDROCHLORIDE
     Dosage: UNK
     Route: 065
  10. URSODIOL [Concomitant]
     Active Substance: URSODIOL
     Dosage: UNK
     Route: 065
  11. ACUPAN [Concomitant]
     Active Substance: NEFOPAM HYDROCHLORIDE
     Dosage: UNK
     Route: 065
  12. PANTOPRAZOLE [Concomitant]
     Active Substance: PANTOPRAZOLE
     Dosage: UNK
     Route: 065
  13. ACETAMINOPHEN [Concomitant]
     Active Substance: ACETAMINOPHEN
     Dosage: UNK
     Route: 065
  14. PHLOROGLUCINOL [Concomitant]
     Active Substance: PHLOROGLUCINOL
     Dosage: UNK
     Route: 065
  15. LETERMOVIR [Concomitant]
     Active Substance: LETERMOVIR
     Dosage: UNK
     Route: 065
  16. CASPOFUNGIN [Concomitant]
     Active Substance: CASPOFUNGIN
     Dosage: UNK
     Route: 065
  17. NEOSTIGMINE [Concomitant]
     Active Substance: NEOSTIGMINE
     Dosage: UNK
     Route: 065
  18. ONDANSETRON HYDROCHLORIDE [Concomitant]
     Active Substance: ONDANSETRON HYDROCHLORIDE
     Dosage: UNK
     Route: 065
  19. FUROSEMIDE [Concomitant]
     Active Substance: FUROSEMIDE
     Dosage: UNK
     Route: 065

REACTIONS (5)
  - Acute kidney injury [Recovering/Resolving]
  - Seizure [Recovered/Resolved]
  - Accidental overdose [Recovered/Resolved]
  - Product prescribing error [Recovered/Resolved]
  - Drug level increased [Recovered/Resolved]

NARRATIVE: CASE EVENT DATE: 20221021
